FAERS Safety Report 6517025-2 (Version None)
Quarter: 2009Q4

REPORT INFORMATION
  Report Type: 
  Country: None (occurrence: None)
  Receive Date: 20091223
  Receipt Date: 20091215
  Transmission Date: 20100525
  Serious: Yes (Hospitalization)
  Sender: FDA-Public Use
  Company Number: GXKR2009RO13482

PATIENT
  Age: 23 Year
  Sex: Female

DRUGS (2)
  1. NIFEDIPINE [Suspect]
     Dosage: 300 TABLETS OF 10 MG (3 G, 60 MG/KG)
     Route: 048
  2. PARACETAMOL (NGX) [Suspect]
     Dosage: UNKNOWN AMOUNT
     Route: 048

REACTIONS (19)
  - CHEST DISCOMFORT [None]
  - CYTOLYTIC HEPATITIS [None]
  - ENDOTRACHEAL INTUBATION [None]
  - GASTRIC LAVAGE [None]
  - HAEMODIALYSIS [None]
  - HYPOTENSION [None]
  - MENTAL STATUS CHANGES [None]
  - METABOLIC ACIDOSIS [None]
  - NAUSEA [None]
  - OLIGURIA [None]
  - OVERDOSE [None]
  - PALPITATIONS [None]
  - PANCREATITIS [None]
  - PLEURISY [None]
  - RENAL FAILURE [None]
  - RESPIRATORY DISTRESS [None]
  - SEPSIS [None]
  - SUICIDE ATTEMPT [None]
  - TINNITUS [None]
